FAERS Safety Report 8209978-1 (Version None)
Quarter: 2012Q1

REPORT INFORMATION
  Report Type: 
  Country: None (occurrence: None)
  Receive Date: 20120314
  Receipt Date: 20110317
  Transmission Date: 20120608
  Serious: Yes (Other)
  Sender: FDA-Public Use
  Company Number: US-ASTRAZENECA-2011SE15673

PATIENT
  Age: 58 Year
  Sex: Male

DRUGS (6)
  1. TOPROL-XL [Suspect]
     Route: 048
  2. ALBUTEROL [Concomitant]
  3. PLAVIX [Concomitant]
  4. VYTORIN [Concomitant]
  5. MICARDIS HCT [Concomitant]
  6. ASPIRIN [Concomitant]

REACTIONS (1)
  - MYOCARDIAL INFARCTION [None]
